FAERS Safety Report 24704873 (Version 1)
Quarter: 2024Q4

REPORT INFORMATION
  Report Type: Spontaneous
  Country: CN (occurrence: CN)
  Receive Date: 20241206
  Receipt Date: 20241206
  Transmission Date: 20250115
  Serious: Yes (Other)
  Sender: UCB
  Company Number: CN-UCBSA-2024062305

PATIENT
  Age: 7 Year
  Sex: Female
  Weight: 22 kg

DRUGS (2)
  1. VIMPAT [Suspect]
     Active Substance: LACOSAMIDE
     Indication: Epilepsy
     Dosage: 50 MILLIGRAM, ONCE DAILY (QD)
     Route: 048
     Dates: start: 20240201
  2. VIMPAT [Suspect]
     Active Substance: LACOSAMIDE
     Dosage: UNK ( 50 MG IN THE MORNING AND 75 MG IN THE EVENING)
     Route: 048
     Dates: start: 2024, end: 20240724

REACTIONS (3)
  - Unresponsive to stimuli [Unknown]
  - Disturbance in attention [Unknown]
  - Adverse reaction [Unknown]

NARRATIVE: CASE EVENT DATE: 20240724
